FAERS Safety Report 7913744-1 (Version None)
Quarter: 2011Q4

REPORT INFORMATION
  Report Type: 
  Country: None (occurrence: None)
  Receive Date: 20111115
  Receipt Date: 20111107
  Transmission Date: 20120403
  Serious: Yes (Other)
  Sender: FDA-Public Use
  Company Number: GB-JNJFOC-20110805519

PATIENT
  Sex: Female
  Weight: 77 kg

DRUGS (6)
  1. PREZISTA [Suspect]
     Route: 048
     Dates: start: 20110531
  2. RITONAVIR [Concomitant]
     Indication: HIV INFECTION
     Route: 048
     Dates: start: 20110531
  3. FOLIC ACID [Concomitant]
     Indication: PRODUCT USED FOR UNKNOWN INDICATION
     Route: 065
  4. PREZISTA [Suspect]
     Indication: HIV INFECTION
     Route: 048
     Dates: start: 20100821, end: 20110531
  5. RITONAVIR [Concomitant]
     Route: 048
     Dates: start: 20100821, end: 20110531
  6. TRUVADA [Concomitant]
     Indication: HIV INFECTION
     Route: 048
     Dates: start: 20110821

REACTIONS (3)
  - ANAEMIA [None]
  - ANTIVIRAL DRUG LEVEL BELOW THERAPEUTIC [None]
  - MATERNAL EXPOSURE DURING PREGNANCY [None]
